FAERS Safety Report 11517745 (Version 1)
Quarter: 2015Q3

REPORT INFORMATION
  Report Type: Spontaneous
  Country: GB (occurrence: GB)
  Receive Date: 20150917
  Receipt Date: 20150917
  Transmission Date: 20151125
  Serious: Yes (Hospitalization)
  Sender: FDA-Public Use
  Company Number: GB-ASTRAZENECA-2015SE87290

PATIENT
  Age: 78 Year
  Sex: Female
  Weight: 53.4 kg

DRUGS (9)
  1. ESCITALOPRAM [Concomitant]
     Active Substance: ESCITALOPRAM OXALATE
  2. ESOMEPRAZOLE [Concomitant]
     Active Substance: ESOMEPRAZOLE
  3. GTN [Concomitant]
     Active Substance: NITROGLYCERIN
  4. ISOSORBIDE. [Concomitant]
     Active Substance: ISOSORBIDE
  5. TICAGRELOR [Suspect]
     Active Substance: TICAGRELOR
     Indication: MYOCARDIAL INFARCTION
     Route: 048
     Dates: end: 20150828
  6. QVAR [Concomitant]
     Active Substance: BECLOMETHASONE DIPROPIONATE
  7. ROSUVASTATIN [Concomitant]
     Active Substance: ROSUVASTATIN
  8. ASPIRIN. [Concomitant]
     Active Substance: ASPIRIN
  9. RAMIPRIL. [Concomitant]
     Active Substance: RAMIPRIL

REACTIONS (3)
  - Angina pectoris [Unknown]
  - Iron deficiency anaemia [Recovering/Resolving]
  - Apathy [Unknown]
